FAERS Safety Report 8777476 (Version 7)
Quarter: 2013Q2

REPORT INFORMATION
  Report Type: Spontaneous
  Country: US (occurrence: US)
  Receive Date: 20120911
  Receipt Date: 20130514
  Transmission Date: 20140414
  Serious: Yes (Hospitalization)
  Sender: FDA-Public Use
  Company Number: US-B.I. PHARMACEUTICALS,INC./RIDGEFIELD-2012-BP-21401BP

PATIENT
  Age: 82 Year
  Sex: Male
  Weight: 99.79 kg

DRUGS (28)
  1. PRADAXA [Suspect]
     Indication: ANTICOAGULANT THERAPY
     Dosage: 300 MG
     Dates: start: 20110506, end: 20120226
  2. PRADAXA [Suspect]
     Indication: ATRIAL FIBRILLATION
  3. VICODIN [Concomitant]
  4. ALBUTEROL [Concomitant]
     Route: 055
  5. ASPIRIN [Concomitant]
     Dosage: 81 MG
  6. PHILIP^S STOOL SOFTENER [Concomitant]
  7. AVODART [Concomitant]
     Indication: BENIGN PROSTATIC HYPERPLASIA
     Dosage: 0.5 MG
     Route: 048
     Dates: start: 20081226
  8. SPIRIVA [Concomitant]
  9. LASIX [Concomitant]
     Indication: HYPERTENSION
     Dosage: 40 MG
  10. GLYBURIDE [Concomitant]
     Indication: DIABETES MELLITUS
     Dosage: 5 MG
     Route: 048
     Dates: start: 20100322
  11. LISINOPRIL [Concomitant]
     Dosage: 10 MG
     Route: 048
     Dates: start: 200504, end: 201202
  12. METFORMIN [Concomitant]
     Indication: DIABETES MELLITUS
     Dosage: 1000 MG
     Route: 048
     Dates: start: 20050516
  13. MULTIVITAMIN [Concomitant]
  14. OMEGA 3 [Concomitant]
     Route: 048
  15. PREDNISONE [Concomitant]
     Indication: PULMONARY FIBROSIS
     Dates: start: 20050701
  16. VIAGRA [Concomitant]
     Indication: ERECTILE DYSFUNCTION
     Dates: start: 200504
  17. ZOCOR [Concomitant]
     Indication: HYPERLIPIDAEMIA
     Dosage: 20 MG
     Route: 048
     Dates: start: 20101111, end: 20120226
  18. FLOMAX [Concomitant]
     Dosage: 0.4 MG
     Route: 048
  19. EPLERENONE [Concomitant]
     Dosage: 25 MG
     Route: 048
     Dates: start: 2008
  20. NAPROXEN [Concomitant]
  21. ALLOPURINOL [Concomitant]
     Dates: start: 201110
  22. IPRATROPIUM [Concomitant]
     Route: 055
     Dates: start: 201102
  23. HYDROCODONE [Concomitant]
     Dates: start: 20060104, end: 20120327
  24. MUSE URETHRAL SUPP [Concomitant]
     Dates: start: 20090313, end: 20120110
  25. CIPROFLOXACIN [Concomitant]
     Dates: start: 20110107, end: 20120420
  26. OMEPRAZOLE [Concomitant]
  27. CRESTOR [Concomitant]
  28. PROPOXYPHENE [Concomitant]

REACTIONS (2)
  - Upper gastrointestinal haemorrhage [Unknown]
  - Haemorrhagic anaemia [Unknown]
